FAERS Safety Report 17809931 (Version 1)
Quarter: 2020Q2

REPORT INFORMATION
  Report Type: Spontaneous
  Country: US (occurrence: US)
  Receive Date: 20200520
  Receipt Date: 20200520
  Transmission Date: 20200714
  Serious: No
  Sender: FDA-Public Use
  Company Number: US-TEVA-2020-US-1237974

PATIENT
  Sex: Female

DRUGS (1)
  1. TRI-SPRINTEC [Suspect]
     Active Substance: ETHINYL ESTRADIOL\NORGESTIMATE
     Route: 065
     Dates: start: 2018, end: 20200511

REACTIONS (7)
  - Dyskinesia [Unknown]
  - Vaginal haemorrhage [Not Recovered/Not Resolved]
  - Nasopharyngitis [Unknown]
  - Neuralgia [Unknown]
  - Headache [Unknown]
  - Vision blurred [Unknown]
  - Paraesthesia [Unknown]

NARRATIVE: CASE EVENT DATE: 2020
